FAERS Safety Report 20462974 (Version 4)
Quarter: 2022Q4

REPORT INFORMATION
  Report Type: Report from Study
  Country: DE (occurrence: DE)
  Receive Date: 20220211
  Receipt Date: 20221206
  Transmission Date: 20230113
  Serious: Yes (Death, Other)
  Sender: FDA-Public Use
  Company Number: DE-BRISTOL-MYERS SQUIBB COMPANY-BMS-2022-019672

PATIENT
  Age: 82 Year
  Sex: Male

DRUGS (17)
  1. NIVOLUMAB [Suspect]
     Active Substance: NIVOLUMAB
     Indication: B-cell lymphoma
     Dosage: 240 MILLIGRAM
     Route: 042
     Dates: start: 20210826, end: 20220118
  2. RITUXIMAB [Suspect]
     Active Substance: RITUXIMAB
     Indication: B-cell lymphoma
     Route: 042
  3. GEMCITABINE HYDROCHLORIDE [Suspect]
     Active Substance: GEMCITABINE HYDROCHLORIDE
     Indication: B-cell lymphoma
     Dosage: 960 MILLIGRAM
     Route: 042
     Dates: start: 20210827, end: 20211221
  4. OXALIPLATIN [Suspect]
     Active Substance: OXALIPLATIN
     Indication: B-cell lymphoma
     Dosage: 95 MILLIGRAM
     Route: 042
     Dates: start: 20210827, end: 20211221
  5. PEGFILGRASTIM [Suspect]
     Active Substance: PEGFILGRASTIM
     Indication: B-cell lymphoma
     Dosage: 4 MILLIGRAM
     Route: 058
     Dates: start: 20210830, end: 20211224
  6. DIAZEPAM [Suspect]
     Active Substance: DIAZEPAM
     Indication: Product used for unknown indication
     Route: 065
  7. UNSPECIFIED INGREDIENT [Suspect]
     Active Substance: UNSPECIFIED INGREDIENT
     Indication: Product used for unknown indication
     Route: 065
  8. NITROGLYCERIN [Suspect]
     Active Substance: NITROGLYCERIN
     Indication: Product used for unknown indication
     Route: 065
  9. ULTRAVIST [Suspect]
     Active Substance: IOPROMIDE
     Indication: Product used for unknown indication
     Route: 065
  10. APIXABAN [Concomitant]
     Active Substance: APIXABAN
     Indication: Atrial fibrillation
     Dosage: 2.5 MILLIGRAM, BID
     Route: 048
  11. TORSEMIDE [Concomitant]
     Active Substance: TORSEMIDE
     Indication: Oedema
     Dosage: 10 MILLIGRAM, BID
     Route: 048
  12. BISOPROLOL [Concomitant]
     Active Substance: BISOPROLOL
     Indication: Atrial fibrillation
     Dosage: 2.5 MILLIGRAM, QD
     Route: 048
  13. ATORVASTATIN [Concomitant]
     Active Substance: ATORVASTATIN
     Indication: Coronary artery disease
     Dosage: 40 MILLIGRAM, QD
     Route: 048
  14. INSULIN NOS [Concomitant]
     Active Substance: INSULIN NOS
     Indication: Type 2 diabetes mellitus
     Dosage: 12 IE ONCE DAILY
     Route: 058
  15. CHOLECALCIFEROL [Concomitant]
     Active Substance: CHOLECALCIFEROL
     Indication: Vitamin D deficiency
     Dosage: 20000 IE ONCE WEEKLY
     Route: 048
  16. ACTRAPID [Concomitant]
     Active Substance: INSULIN HUMAN
     Indication: Type 2 diabetes mellitus
     Dosage: AS NEEDED
     Route: 048
  17. CANDESARTAN [Concomitant]
     Active Substance: CANDESARTAN
     Indication: Cardiac failure chronic
     Dosage: 4 MILLIGRAM, QD
     Route: 048
     Dates: start: 20220201

REACTIONS (1)
  - Anaphylactic reaction [Fatal]

NARRATIVE: CASE EVENT DATE: 20220208
